FAERS Safety Report 18341386 (Version 1)
Quarter: 2020Q4

REPORT INFORMATION
  Report Type: Report from Study
  Country: ES (occurrence: ES)
  Receive Date: 20201003
  Receipt Date: 20201003
  Transmission Date: 20210113
  Serious: Yes (Hospitalization)
  Sender: FDA-Public Use
  Company Number: ES-TEVA-2020-ES-1835117

PATIENT
  Age: 55 Year
  Sex: Male
  Weight: 64 kg

DRUGS (7)
  1. KREON [Concomitant]
     Active Substance: PANCRELIPASE
     Indication: BARRETT^S OESOPHAGUS
     Dosage: 15000 IU (INTERNATIONAL UNIT) DAILY;
     Route: 048
  2. ERYASPASE [Suspect]
     Active Substance: ASPARAGINASE
     Indication: DUCTAL ADENOCARCINOMA OF PANCREAS
     Dosage: DAILY DOSE: 100 U/KG. ADMINISTERED EVERY TWO WEEKS, EACH 4-WEEK CYCLE.
     Route: 042
     Dates: start: 20191113, end: 20191113
  3. LEUCOVORIN (FOLFIRI) (CALCIUM FOLINATE) [Suspect]
     Active Substance: LEUCOVORIN CALCIUM
     Indication: DUCTAL ADENOCARCINOMA OF PANCREAS
     Dosage: DAILY DOSE: 692 MG (400 MG/M2)
     Route: 042
     Dates: start: 20191113, end: 20191113
  4. IRINOTECAN HYDROCHLORIDE (FOLFIRI) [Suspect]
     Active Substance: IRINOTECAN HYDROCHLORIDE
     Indication: DUCTAL ADENOCARCINOMA OF PANCREAS
     Dosage: DAILY DOSE OF 311.4 MG (180 MG/M2)
     Route: 042
     Dates: start: 20191113, end: 20191113
  5. OMEPRAZOLE. [Concomitant]
     Active Substance: OMEPRAZOLE
     Indication: BARRETT^S OESOPHAGUS
     Dosage: 20 MILLIGRAM DAILY;
     Route: 048
  6. FLUOROURACIL (FOLFIRI) [Suspect]
     Active Substance: FLUOROURACIL
     Indication: DUCTAL ADENOCARCINOMA OF PANCREAS
     Dosage: DAILY DOSE: BOLUS 692 MG AND 4152 MG (48 H) / (400 MF/M2 + 2400 MG/M2)
     Route: 042
     Dates: start: 20191113, end: 20191113
  7. LORAZEPAM. [Concomitant]
     Active Substance: LORAZEPAM
     Indication: PROPHYLAXIS
     Dosage: 2 MILLIGRAM DAILY;
     Route: 048
     Dates: start: 2018

REACTIONS (1)
  - Pyrexia [Recovered/Resolved]

NARRATIVE: CASE EVENT DATE: 20191116
